FAERS Safety Report 9162121 (Version 1)
Quarter: 2013Q1

REPORT INFORMATION
  Report Type: Spontaneous
  Country: BR (occurrence: None)
  Receive Date: 20130220
  Receipt Date: 20130220
  Transmission Date: 20140127
  Serious: Yes (Hospitalization)
  Sender: FDA-Public Use
  Company Number: DSU-2013-01376

PATIENT
  Age: 74 Year
  Sex: Male
  Weight: 97 kg

DRUGS (9)
  1. OLMETEC HCT [Suspect]
     Indication: PRODUCT USED FOR UNKNOWN INDICATION
     Route: 048
     Dates: start: 2009
  2. ACICLOVIR (ACICLOVIR)(ACICLOVIR) [Concomitant]
  3. ASS (ACEETYLSALICYLIC ACID)(ACETYLSALICYLIC ACID) [Concomitant]
  4. BACTRIN (SULFAMETHOXAZOLE, TRIMETHOPRIM)(SULFAMETHOXAZOLE, TRIMETHOPRIM) [Concomitant]
  5. CRESTOR (ROSUVASTATIN)(ROSUVASTATIN) [Concomitant]
  6. OMEPRAZOLE (OMEPRAZOLE)(OMEPRAZOLE) [Concomitant]
  7. PREDNISONE (PREDNISONE)(PREDNISONE) [Concomitant]
  8. LIPLESS (CIPROFIBRATE)(CIPROFIBRATE) [Concomitant]
  9. NORVASC (AMLODIPINE BESILATE)(5 MG)(AMLODIPINE BESILATE) [Concomitant]

REACTIONS (3)
  - Lymphoma [None]
  - Herpes virus infection [None]
  - Exostosis [None]
